FAERS Safety Report 8238814-2 (Version None)
Quarter: 2012Q1

REPORT INFORMATION
  Report Type: 
  Country: None (occurrence: None)
  Receive Date: 20120327
  Receipt Date: 20120321
  Transmission Date: 20120608
  Serious: Yes (Other)
  Sender: FDA-Public Use
  Company Number: CHPA2012US005266

PATIENT
  Age: 10 Year
  Sex: Male

DRUGS (1)
  1. PREVACID 24 HR [Suspect]
     Indication: GASTROOESOPHAGEAL REFLUX DISEASE
     Dosage: 15MG EVERYDAY
     Route: 048
     Dates: start: 20090101

REACTIONS (5)
  - OFF LABEL USE [None]
  - OVERDOSE [None]
  - INCORRECT DRUG ADMINISTRATION DURATION [None]
  - WRIST FRACTURE [None]
  - THERAPEUTIC RESPONSE UNEXPECTED [None]
